FAERS Safety Report 11310657 (Version 3)
Quarter: 2015Q3

REPORT INFORMATION
  Report Type: Spontaneous
  Country: HR (occurrence: HR)
  Receive Date: 20150725
  Receipt Date: 20150902
  Transmission Date: 20151125
  Serious: Yes (Hospitalization, Other)
  Sender: FDA-Public Use
  Company Number: HR-ABBVIE-15K-216-1430115-00

PATIENT
  Sex: Female

DRUGS (1)
  1. HUMIRA [Suspect]
     Active Substance: ADALIMUMAB
     Indication: RHEUMATOID ARTHRITIS
     Route: 065
     Dates: start: 2012, end: 201505

REACTIONS (14)
  - Genital disorder female [Unknown]
  - Hepatic neoplasm [Unknown]
  - Hypophagia [Unknown]
  - Metastatic neoplasm [Unknown]
  - Diarrhoea [Unknown]
  - Cervix enlargement [Unknown]
  - Ascites [Recovered/Resolved]
  - Pleural effusion [Unknown]
  - Colitis ischaemic [Unknown]
  - Adenocarcinoma [Unknown]
  - Renal cyst [Unknown]
  - General physical health deterioration [Unknown]
  - Abdominal neoplasm [Unknown]
  - Immobile [Unknown]

NARRATIVE: CASE EVENT DATE: 201505
